FAERS Safety Report 10710808 (Version 1)
Quarter: 2015Q1

REPORT INFORMATION
  Report Type: Spontaneous
  Country: GB (occurrence: None)
  Receive Date: 20150112
  Receipt Date: 20150112
  Transmission Date: 20150721
  Serious: Yes (Other)
  Sender: FDA-Public Use
  Company Number: 2015000908

PATIENT
  Age: 22 Year
  Sex: Female
  Weight: 99 kg

DRUGS (1)
  1. FRAGMIN [Suspect]
     Active Substance: DALTEPARIN SODIUM
     Indication: THROMBOSIS PROPHYLAXIS
     Dosage: 5,000 IU/0.2ML, PARENTERAL
     Route: 051
     Dates: start: 20141208

REACTIONS (4)
  - Pruritus generalised [None]
  - Skin haemorrhage [None]
  - Skin burning sensation [None]
  - Scratch [None]

NARRATIVE: CASE EVENT DATE: 20141220
